FAERS Safety Report 10548079 (Version 1)
Quarter: 2014Q4

REPORT INFORMATION
  Report Type: Spontaneous
  Country: US (occurrence: None)
  Receive Date: 20141027
  Receipt Date: 20141027
  Transmission Date: 20150529
  Serious: Yes (Other)
  Sender: FDA-Public Use
  Company Number: None

PATIENT
  Age: 66 Year
  Sex: Male
  Weight: 104.33 kg

DRUGS (1)
  1. CEFDINIR. [Suspect]
     Active Substance: CEFDINIR
     Indication: RESPIRATORY TRACT INFECTION
     Dosage: 2 PILLS
     Route: 048
     Dates: start: 20141020, end: 20141025

REACTIONS (1)
  - Epistaxis [None]

NARRATIVE: CASE EVENT DATE: 20141020
